FAERS Safety Report 13076894 (Version 3)
Quarter: 2017Q1

REPORT INFORMATION
  Report Type: Spontaneous
  Country: FR (occurrence: FR)
  Receive Date: 20161230
  Receipt Date: 20170125
  Transmission Date: 20170428
  Serious: Yes (Other)
  Sender: FDA-Public Use
  Company Number: FR-PFIZER INC-2016595456

PATIENT
  Age: 70 Year
  Sex: Male

DRUGS (11)
  1. LEDERFOLINE [Suspect]
     Active Substance: LEUCOVORIN CALCIUM
     Indication: HAEMATOTOXICITY
     Dosage: 25 MG, 1X/DAY
     Route: 048
     Dates: start: 20160729, end: 20160805
  2. CLOPIDOGREL [Concomitant]
     Active Substance: CLOPIDOGREL BISULFATE
     Dosage: 75 MG, 1X/DAY 0-1-0
     Route: 048
  3. PARACETAMOL [Concomitant]
     Active Substance: ACETAMINOPHEN
     Dosage: 500 MG, UP TO 4 DF PER DAY
  4. CATIONORM [Concomitant]
     Dosage: 1 GTT, 2 UP TO 4 TIMES A DAY IN BOTH EYES
  5. ADIAZINE [Suspect]
     Active Substance: SULFADIAZINE
     Indication: CEREBRAL TOXOPLASMOSIS
     Dosage: 6000 MG, 1X/DAY
     Route: 048
     Dates: start: 20160729, end: 20160804
  6. MALOCIDE /00112501/ [Suspect]
     Active Substance: PYRIMETHAMINE
     Indication: TOXOPLASMOSIS
     Dosage: 50 MG, 1X/DAY
     Route: 048
     Dates: start: 20160729, end: 20160804
  7. AMOXICILLIN. [Concomitant]
     Active Substance: AMOXICILLIN
     Indication: INTERVERTEBRAL DISCITIS
     Dosage: 1 G, 4X/DAY
     Dates: start: 201605
  8. OMEPRAZOLE. [Concomitant]
     Active Substance: OMEPRAZOLE
     Dosage: 20 MG, 1X/DAY 0-0-1
  9. TOBREX [Concomitant]
     Active Substance: TOBRAMYCIN
     Dosage: 1 GTT, 2X/DAY IN THE LEFT EYE
     Route: 047
  10. ESOMEPRAZOLE [Concomitant]
     Active Substance: ESOMEPRAZOLE
     Indication: GASTRODUODENAL ULCER
     Dosage: 40 MG, 1X/DAY
     Route: 048
     Dates: end: 20160805
  11. LYRICA [Concomitant]
     Active Substance: PREGABALIN
     Dosage: 50 MG, 1X/DAY 0-0-1
     Route: 048
     Dates: end: 20160805

REACTIONS (1)
  - Acute kidney injury [Recovered/Resolved]

NARRATIVE: CASE EVENT DATE: 20160805
